FAERS Safety Report 4845495-4 (Version None)
Quarter: 2005Q4

REPORT INFORMATION
  Report Type: 
  Country: None (occurrence: None)
  Receive Date: 20051201
  Receipt Date: 20051116
  Transmission Date: 20060501
  Serious: Yes (Death)
  Sender: FDA-Public Use
  Company Number: 006085

PATIENT
  Sex: Female

DRUGS (5)
  1. CENESTIN [Suspect]
     Dosage: ORAL
     Route: 048
     Dates: start: 20021001, end: 20031127
  2. AYGESTIN [Suspect]
     Dosage: ORAL
     Route: 048
     Dates: start: 20030326, end: 20031127
  3. PROMETRIUM [Suspect]
     Dosage: ORAL
     Route: 048
     Dates: start: 20021001, end: 20030325
  4. PREMPRO [Suspect]
     Dosage: ORAL
     Route: 048
     Dates: start: 20020707
  5. IRON (IRON) [Concomitant]

REACTIONS (10)
  - ACUTE MYOCARDIAL INFARCTION [None]
  - BLOOD PRESSURE INCREASED [None]
  - CARDIAC ARREST [None]
  - CORONARY ARTERY OCCLUSION [None]
  - CORONARY ARTERY THROMBOSIS [None]
  - MENSTRUATION IRREGULAR [None]
  - METRORRHAGIA [None]
  - MUSCLE SPASMS [None]
  - UTERINE HAEMORRHAGE [None]
  - VENTRICULAR FIBRILLATION [None]
